FAERS Safety Report 10006850 (Version 2)
Quarter: 2014Q1

REPORT INFORMATION
  Report Type: Spontaneous
  Country: US (occurrence: US)
  Receive Date: 20140313
  Receipt Date: 20140313
  Transmission Date: 20141002
  Serious: No
  Sender: FDA-Public Use
  Company Number: US-GILEAD-2012-0063783

PATIENT
  Sex: Female

DRUGS (3)
  1. LETAIRIS [Suspect]
     Indication: PULMONARY HYPERTENSION
     Dosage: 5 MG, QID
     Route: 048
     Dates: start: 20120707
  2. LETAIRIS [Suspect]
     Indication: HIV INFECTION
  3. VENTAVIS [Concomitant]

REACTIONS (1)
  - Bronchitis [Unknown]
